FAERS Safety Report 5626039-6 (Version None)
Quarter: 2008Q1

REPORT INFORMATION
  Report Type: 
  Country: None (occurrence: None)
  Receive Date: 20080214
  Receipt Date: 20080204
  Transmission Date: 20080703
  Serious: Yes (Hospitalization)
  Sender: FDA-Public Use
  Company Number: US-SP-2008-00396

PATIENT
  Age: 84 Year
  Sex: Male

DRUGS (1)
  1. BCG  THERAPEUTICS [Suspect]
     Indication: BLADDER CANCER
     Route: 043

REACTIONS (11)
  - ACTIVITIES OF DAILY LIVING IMPAIRED [None]
  - BONE MARROW GRANULOMA [None]
  - BOVINE TUBERCULOSIS [None]
  - DYSPNOEA [None]
  - LYMPHADENOPATHY [None]
  - NIGHT SWEATS [None]
  - PANCYTOPENIA [None]
  - PULMONARY GRANULOMA [None]
  - PYREXIA [None]
  - SPLENOMEGALY [None]
  - WEIGHT DECREASED [None]
